FAERS Safety Report 14874162 (Version 3)
Quarter: 2018Q2

REPORT INFORMATION
  Report Type: Spontaneous
  Country: US (occurrence: US)
  Receive Date: 20180510
  Receipt Date: 20180516
  Transmission Date: 20180711
  Serious: Yes (Other)
  Sender: FDA-Public Use
  Company Number: US-PFIZER INC-2018191036

PATIENT

DRUGS (9)
  1. NEXIUM 24HR [Suspect]
     Active Substance: ESOMEPRAZOLE MAGNESIUM
  2. PRILOSEC [Suspect]
     Active Substance: OMEPRAZOLE MAGNESIUM
  3. ACIPHEX [Suspect]
     Active Substance: RABEPRAZOLE SODIUM
  4. DEXILANT [Suspect]
     Active Substance: DEXLANSOPRAZOLE
  5. PREVACID [Suspect]
     Active Substance: LANSOPRAZOLE
     Dosage: UNK
  6. PRILOSEC OTC [Suspect]
     Active Substance: OMEPRAZOLE MAGNESIUM
  7. PREVACID 24 HR [Suspect]
     Active Substance: LANSOPRAZOLE
  8. PROTONIX [Suspect]
     Active Substance: PANTOPRAZOLE SODIUM
  9. NEXIUM [Suspect]
     Active Substance: ESOMEPRAZOLE MAGNESIUM

REACTIONS (4)
  - Tubulointerstitial nephritis [Unknown]
  - Chronic kidney disease [Unknown]
  - End stage renal disease [Unknown]
  - Acute kidney injury [Unknown]
